FAERS Safety Report 9543163 (Version 1)
Quarter: 2013Q3

REPORT INFORMATION
  Report Type: Spontaneous
  Country: US (occurrence: US)
  Receive Date: 20130923
  Receipt Date: 20130923
  Transmission Date: 20140515
  Serious: No
  Sender: FDA-Public Use
  Company Number: US-PURDUE-USA-2012-0090672

PATIENT
  Sex: Female

DRUGS (1)
  1. HYDROMORPHONE TABLET (RHODES) [Suspect]
     Indication: PAIN
     Dosage: 8 MG, Q6H
     Route: 048

REACTIONS (1)
  - Drug ineffective [Not Recovered/Not Resolved]
